FAERS Safety Report 6372032-8 (Version None)
Quarter: 2009Q3

REPORT INFORMATION
  Report Type: 
  Country: None (occurrence: None)
  Receive Date: 20090917
  Receipt Date: 20090904
  Transmission Date: 20100115
  Serious: Yes (Death)
  Sender: FDA-Public Use
  Company Number: ADR19252009

PATIENT
  Age: 74 Year
  Sex: Male

DRUGS (12)
  1. SALBUTAMOL SULPHATE (MFR: UNKNOWN) [Suspect]
     Dosage: 100 MCG/PUFF;INHALATION USE
     Route: 055
  2. SPIRIVA 18 MCG INHALATION POWDER, HARD CAPSULE 18.0 MCG [Concomitant]
  3. AMITRIPTYLINE HCL [Concomitant]
  4. CLARITHROMYCIN 250 MG BD [Concomitant]
  5. MENTHOL [Concomitant]
  6. OXYGEN 1360 L [Concomitant]
  7. PARACETAMOL 500 MG, 2 QID [Concomitant]
  8. PREDNISOLONE 5 MG OD [Concomitant]
  9. SERETIDE 2 PUFFS TWICE DAILY [Concomitant]
  10. SUMATRIPTAN SUCCINATE [Concomitant]
  11. VERAPAMIL 120 MG, 1 X TID [Concomitant]
  12. EUCALYPTUS GLOBULUS [Concomitant]

REACTIONS (2)
  - CHRONIC OBSTRUCTIVE PULMONARY DISEASE [None]
  - LOWER RESPIRATORY TRACT INFECTION [None]
